FAERS Safety Report 23085466 (Version 1)
Quarter: 2023Q4

REPORT INFORMATION
  Report Type: Spontaneous
  Country: GB (occurrence: GB)
  Receive Date: 20231019
  Receipt Date: 20231019
  Transmission Date: 20240110
  Serious: Yes (Life-Threatening, Other)
  Sender: FDA-Public Use
  Company Number: GB-MYLANLABS-2023M1103245

PATIENT
  Age: 70 Year
  Sex: Male
  Weight: 85 kg

DRUGS (9)
  1. CLARITHROMYCIN [Suspect]
     Active Substance: CLARITHROMYCIN
     Indication: Product used for unknown indication
     Dosage: 1000 MILLIGRAM DAILY; 500 MILLIGRAM, BID, THERAPY END DATE: NASK
     Route: 065
     Dates: start: 20230612
  2. AMLODIPINE [Concomitant]
     Active Substance: AMLODIPINE BESYLATE
     Indication: Product used for unknown indication
     Dosage: 1 DOSAGE FORMS DAILY; 1 DOSAGE FORM, QD
     Route: 065
     Dates: start: 20230105
  3. ATORVASTATIN [Concomitant]
     Active Substance: ATORVASTATIN
     Indication: Product used for unknown indication
     Dosage: 1 DOSAGE FORMS DAILY; 1 DOSAGE FORM, QD
     Route: 065
     Dates: start: 20230105
  4. AUDAVATE [Concomitant]
     Indication: Product used for unknown indication
     Dosage: UNK (MODERATE POTENCY STEROID CREAM - APPLY TWICE A), DURATION : 2 DAYS
     Route: 065
     Dates: start: 20230605, end: 20230606
  5. BETAMETHASONE VALERATE [Concomitant]
     Active Substance: BETAMETHASONE VALERATE
     Indication: Product used for unknown indication
     Dosage: UNK (TO BE APPLIED TO THE AFFECTED AREA(S) ONCE OR T)
     Route: 065
     Dates: start: 20230615
  6. DERMOL [Concomitant]
     Active Substance: BENZALKONIUM CHLORIDE\CHLORHEXIDINE HYDROCHLORIDE\ISOPROPYL MYRISTATE\PARAFFIN
     Indication: Dry skin
     Dosage: UNK (TO BE APPLIED LIBERALLY ( AVOID UN)
     Route: 065
     Dates: start: 20230609
  7. FEXOFENADINE [Concomitant]
     Active Substance: FEXOFENADINE HYDROCHLORIDE
     Indication: Product used for unknown indication
     Dosage: 1 DOSAGE FORMS DAILY; 1 DOSAGE FORM, QD (FOR CHRONIC ), DURATION : 31 DAYS
     Route: 065
     Dates: start: 20230605, end: 20230705
  8. PREDNISOLONE [Concomitant]
     Active Substance: PREDNISOLONE
     Indication: Product used for unknown indication
     Dosage: 3 DOSAGE FORMS DAILY; 3 DOSAGE FORM, QD (FOR 3 DAYS THEN TWO A DAY FOR THREE DAYS THEN ONE A DAY FOR
     Route: 065
     Dates: start: 20230612, end: 20230621
  9. RAMIPRIL [Concomitant]
     Active Substance: RAMIPRIL
     Indication: Product used for unknown indication
     Dosage: 1 DOSAGE FORMS DAILY; 1 DOSAGE FORM, QD
     Route: 065
     Dates: start: 20230105

REACTIONS (1)
  - Stevens-Johnson syndrome [Recovering/Resolving]
